FAERS Safety Report 8454803-7 (Version None)
Quarter: 2012Q2

REPORT INFORMATION
  Report Type: 
  Country: None (occurrence: None)
  Receive Date: 20120615
  Receipt Date: 20120615
  Transmission Date: 20120825
  Serious: Yes (Disabling)
  Sender: FDA-Public Use
  Company Number: None

PATIENT
  Sex: Female
  Weight: 54.4316 kg

DRUGS (2)
  1. SIMVASTATIN [Suspect]
     Indication: BLOOD CHOLESTEROL INCREASED
     Dosage: 10 MG DAILY ORALLY
     Route: 048
     Dates: start: 20101001, end: 20120201
  2. SIMVASTATIN [Suspect]
     Indication: BLOOD CHOLESTEROL INCREASED
     Dosage: 20 MG DAILY ORALLY
     Route: 048
     Dates: start: 20080601, end: 20101001

REACTIONS (4)
  - LIGAMENT RUPTURE [None]
  - ASTHENIA [None]
  - MUSCULAR WEAKNESS [None]
  - DYSSTASIA [None]
